FAERS Safety Report 6190714-8 (Version None)
Quarter: 2009Q2

REPORT INFORMATION
  Report Type: 
  Country: None (occurrence: None)
  Receive Date: 20090508
  Receipt Date: 20080331
  Transmission Date: 20091009
  Serious: Yes (Other)
  Sender: FDA-Public Use
  Company Number: 46758

PATIENT
  Age: 65 Year
  Sex: Female

DRUGS (1)
  1. ADRIAMYCIN (DOXORUBICIN) INJEC. USP  10MG/ 5ML - BEDFORD LABS, INC. [Suspect]
     Indication: B-CELL LYMPHOMA
     Dates: start: 20080301

REACTIONS (2)
  - ABDOMINAL DISCOMFORT [None]
  - DIARRHOEA [None]
